FAERS Safety Report 8428115-1 (Version None)
Quarter: 2012Q2

REPORT INFORMATION
  Report Type: 
  Country: None (occurrence: None)
  Receive Date: 20120611
  Receipt Date: 20120607
  Transmission Date: 20120825
  Serious: Yes (Hospitalization)
  Sender: FDA-Public Use
  Company Number: SE-ROCHE-1076345

PATIENT
  Age: 70 Year
  Sex: Male
  Weight: 95.1 kg

DRUGS (2)
  1. VEMURAFENIB [Suspect]
     Indication: MALIGNANT MELANOMA
     Dosage: LAST DOSE PRIOR TO THE SAE ON 20/MAY/2012
     Route: 048
     Dates: start: 20120130, end: 20120522
  2. FELODIPINE [Concomitant]
     Dates: start: 20111215

REACTIONS (1)
  - BRAIN ABSCESS [None]
